FAERS Safety Report 8761234 (Version 2)
Quarter: 2012Q4

REPORT INFORMATION
  Report Type: 
  Country: US (occurrence: US)
  Receive Date: 20120830
  Receipt Date: 20120924
  Transmission Date: 20130627
  Serious: Yes (Death)
  Sender: FDA-Public Use
  Company Number: US-GLAXOSMITHKLINE-A0991491A

PATIENT
  Age: 21 Year
  Sex: Male
  Weight: 48 kg

DRUGS (1)
  1. HYCAMTIN [Suspect]
     Indication: BRAIN NEOPLASM MALIGNANT
     Dosage: 1MG Per day
     Route: 048
     Dates: start: 20120510, end: 201206

REACTIONS (2)
  - Medulloblastoma [Fatal]
  - Metastatic neoplasm [Unknown]
